FAERS Safety Report 24058426 (Version 2)
Quarter: 2024Q3

REPORT INFORMATION
  Report Type: Spontaneous
  Country: CN (occurrence: CN)
  Receive Date: 20240708
  Receipt Date: 20240812
  Transmission Date: 20241017
  Serious: No
  Sender: NOVO NORDISK
  Company Number: CN-NOVOPROD-1247124

PATIENT
  Sex: Female

DRUGS (1)
  1. OZEMPIC [Suspect]
     Active Substance: SEMAGLUTIDE
     Indication: Weight control
     Dosage: 1 MG

REACTIONS (5)
  - Temperature intolerance [Unknown]
  - Vomiting [Unknown]
  - Dizziness [Unknown]
  - Product use in unapproved indication [Unknown]
  - Drug dose titration not performed [Unknown]
